FAERS Safety Report 10597441 (Version 1)
Quarter: 2014Q4

REPORT INFORMATION
  Report Type: Spontaneous
  Country: None (occurrence: None)
  Receive Date: 20141119
  Receipt Date: 20141119
  Transmission Date: 20150529
  Serious: Yes (Death, Other)
  Sender: FDA-Public Use
  Company Number: RAP-0165-2014

PATIENT
  Age: 31 Year
  Sex: Female

DRUGS (1)
  1. PROCYSBI DELAYED-RELEASE [Suspect]
     Active Substance: CYSTEAMINE BITARTRATE
     Indication: AMINO ACID METABOLISM DISORDER
     Dosage: (450 MG, 1 IN 12 HR)
     Route: 048

REACTIONS (3)
  - Gastroenteritis viral [None]
  - Unresponsive to stimuli [None]
  - Aspiration [None]
